FAERS Safety Report 23509942 (Version 1)
Quarter: 2024Q1

REPORT INFORMATION
  Report Type: Spontaneous
  Country: US (occurrence: US)
  Receive Date: 20240211
  Receipt Date: 20240211
  Transmission Date: 20240410
  Serious: No
  Sender: FDA-Public Use
  Company Number: US-JNJFOC-20240173486

PATIENT

DRUGS (5)
  1. TREMFYA [Suspect]
     Active Substance: GUSELKUMAB
     Indication: Psoriasis
     Route: 065
  2. TREMFYA [Suspect]
     Active Substance: GUSELKUMAB
  3. TREMFYA [Suspect]
     Active Substance: GUSELKUMAB
  4. OZEMPIC [Interacting]
     Active Substance: SEMAGLUTIDE
     Indication: Diabetes mellitus
     Route: 065
  5. GLIMEPIRIDE [Interacting]
     Active Substance: GLIMEPIRIDE
     Indication: Diabetes mellitus
     Route: 065

REACTIONS (2)
  - Hyperglycaemia [Unknown]
  - Drug interaction [Unknown]
